FAERS Safety Report 15963453 (Version 1)
Quarter: 2019Q1

REPORT INFORMATION
  Report Type: Spontaneous
  Country: None (occurrence: US)
  Receive Date: 20190214
  Receipt Date: 20190214
  Transmission Date: 20190417
  Serious: Yes (Other)
  Sender: FDA-Public Use
  Company Number: US-ALLERGAN-1849487US

PATIENT
  Age: 71 Year
  Sex: Female

DRUGS (2)
  1. OZURDEX [Suspect]
     Active Substance: DEXAMETHASONE
     Indication: RETINAL VEIN OCCLUSION
     Dosage: 0.7 MG, SINGLE
     Route: 031
     Dates: start: 20180926, end: 20180926
  2. ANTIHYPERTENSIVES [Concomitant]
     Active Substance: UNSPECIFIED INGREDIENT
     Indication: HYPERTENSION
     Dosage: UNK

REACTIONS (5)
  - Hypopyon [Unknown]
  - Vitrectomy [Recovering/Resolving]
  - Endophthalmitis [Unknown]
  - Vitritis [Unknown]
  - Vision blurred [Unknown]

NARRATIVE: CASE EVENT DATE: 20180929
